FAERS Safety Report 21355413 (Version 1)
Quarter: 2022Q3

REPORT INFORMATION
  Report Type: Spontaneous
  Country: SE (occurrence: None)
  Receive Date: 20220920
  Receipt Date: 20220920
  Transmission Date: 20221027
  Serious: Yes (Death, Hospitalization, Other)
  Sender: FDA-Public Use
  Company Number: SE-ROCHE-3174240

PATIENT
  Age: 77 Year
  Sex: Male

DRUGS (2)
  1. ROZLYTREK [Suspect]
     Active Substance: ENTRECTINIB
     Indication: Lung neoplasm malignant
     Route: 065
     Dates: start: 20210911
  2. ROZLYTREK [Suspect]
     Active Substance: ENTRECTINIB
     Route: 065
     Dates: start: 20211209

REACTIONS (9)
  - Cardiac arrest [Fatal]
  - Oedema peripheral [Unknown]
  - Infection [Unknown]
  - Dyspnoea [Unknown]
  - Lung neoplasm [Unknown]
  - Weight increased [Unknown]
  - Blood creatinine increased [Unknown]
  - Aspartate aminotransferase increased [Unknown]
  - Alanine aminotransferase increased [Unknown]

NARRATIVE: CASE EVENT DATE: 20210917
